FAERS Safety Report 7554653-X (Version None)
Quarter: 2011Q2

REPORT INFORMATION
  Report Type: 
  Country: None (occurrence: None)
  Receive Date: 20110617
  Receipt Date: 20110614
  Transmission Date: 20111010
  Serious: Yes (Other)
  Sender: FDA-Public Use
  Company Number: US-PFIZER INC-2011069760

PATIENT
  Sex: Male

DRUGS (1)
  1. CHANTIX [Suspect]
     Indication: SMOKING CESSATION THERAPY
     Dosage: UNK
     Dates: start: 20090401, end: 20090701

REACTIONS (12)
  - MENTAL DISORDER [None]
  - ABNORMAL BEHAVIOUR [None]
  - EMOTIONAL DISTRESS [None]
  - LOSS OF CONSCIOUSNESS [None]
  - DEPRESSION [None]
  - INJURY [None]
  - ANXIETY [None]
  - PAIN [None]
  - ABNORMAL DREAMS [None]
  - SUICIDAL IDEATION [None]
  - AGGRESSION [None]
  - IMPAIRED DRIVING ABILITY [None]
